FAERS Safety Report 7878771-1 (Version None)
Quarter: 2011Q4

REPORT INFORMATION
  Report Type: 
  Country: None (occurrence: None)
  Receive Date: 20111021
  Receipt Date: 20110712
  Transmission Date: 20120403
  Serious: No
  Sender: FDA-Public Use
  Company Number: US-005813

PATIENT
  Sex: Male
  Weight: 76.2043 kg

DRUGS (8)
  1. TAMOXIFEN CITRATE [Concomitant]
  2. SELENIUM [Concomitant]
  3. ZINC [Concomitant]
  4. VITAMIN D [Concomitant]
  5. VITAMIN B COMPLEX /00059201/ [Concomitant]
  6. MAGNESIUM [Concomitant]
  7. CASODEX [Concomitant]
  8. DEGARELIX [Suspect]
     Indication: PROSTATE CANCER
     Dosage: (SUBCUTANEOUS)
     Route: 058
     Dates: start: 20110112, end: 20110408

REACTIONS (10)
  - FATIGUE [None]
  - WEIGHT INCREASED [None]
  - HYPERHIDROSIS [None]
  - DECREASED ACTIVITY [None]
  - SEXUAL INHIBITION [None]
  - VIRAL INFECTION [None]
  - DEPRESSION [None]
  - HOT FLUSH [None]
  - INITIAL INSOMNIA [None]
  - INSOMNIA [None]
